FAERS Safety Report 6888507-9 (Version None)
Quarter: 2010Q3

REPORT INFORMATION
  Report Type: 
  Country: None (occurrence: None)
  Receive Date: 20100730
  Receipt Date: 20100719
  Transmission Date: 20110219
  Serious: Yes (Hospitalization, Other)
  Sender: FDA-Public Use
  Company Number: PHHY2010MX47384

PATIENT
  Age: 74 Year
  Sex: Female

DRUGS (2)
  1. ACLASTA [Suspect]
     Indication: OSTEOPOROSIS
     Dosage: 5 MG PER YEAR
     Route: 042
     Dates: start: 20090501
  2. MOTILIUM [Concomitant]

REACTIONS (3)
  - DIAPHRAGMATIC HERNIA [None]
  - DIARRHOEA [None]
  - SURGERY [None]
